FAERS Safety Report 23850588 (Version 2)
Quarter: 2024Q2

REPORT INFORMATION
  Report Type: Spontaneous
  Country: US (occurrence: US)
  Receive Date: 20240513
  Receipt Date: 20240516
  Transmission Date: 20240716
  Serious: Yes (Other)
  Sender: FDA-Public Use
  Company Number: US-ABBVIE-5756100

PATIENT
  Sex: Female

DRUGS (2)
  1. GELNIQUE [Suspect]
     Active Substance: OXYBUTYNIN
     Indication: Hypertonic bladder
     Dosage: FORM STRENGTH: OXYBUTYNIN 3% GEL?START DATE TEXT: 5 YEARS
     Route: 062
     Dates: start: 2019
  2. LIDOCAINE [Suspect]
     Active Substance: LIDOCAINE
     Indication: Product used for unknown indication
     Route: 065

REACTIONS (10)
  - Cerebrovascular accident [Unknown]
  - Brain fog [Unknown]
  - Headache [Unknown]
  - Muscle spasms [Unknown]
  - Vision blurred [Unknown]
  - Hypoaesthesia [Unknown]
  - Deafness unilateral [Unknown]
  - Bladder disorder [Unknown]
  - Asthenia [Unknown]
  - Swelling [Unknown]
